FAERS Safety Report 4761697-X (Version None)
Quarter: 2005Q3

REPORT INFORMATION
  Report Type: 
  Country: None (occurrence: None)
  Receive Date: 20050831
  Receipt Date: 20050721
  Transmission Date: 20060218
  Serious: No
  Sender: FDA-Public Use
  Company Number: PHEH2005US08145

PATIENT
  Age: 68 Year
  Sex: Female

DRUGS (2)
  1. ENABLEX [Suspect]
     Indication: HYPERTONIC BLADDER
     Dosage: 7.5 MG, QD
  2. DITROPAN /USA/(OXYBUTYNIN) [Suspect]
     Indication: HYPERTONIC BLADDER

REACTIONS (1)
  - ALOPECIA [None]
